FAERS Safety Report 6844366-1 (Version None)
Quarter: 2010Q3

REPORT INFORMATION
  Report Type: 
  Country: None (occurrence: None)
  Receive Date: 20100715
  Receipt Date: 20100628
  Transmission Date: 20110219
  Serious: Yes (Other)
  Sender: FDA-Public Use
  Company Number: JP-ROCHE-715117

PATIENT
  Sex: Male

DRUGS (12)
  1. CAPECITABINE [Suspect]
     Indication: COLON CANCER
     Route: 048
     Dates: start: 20090105, end: 20090119
  2. CAPECITABINE [Suspect]
     Route: 048
     Dates: start: 20090126, end: 20090209
  3. CAPECITABINE [Suspect]
     Route: 048
     Dates: start: 20090216, end: 20090302
  4. CAPECITABINE [Suspect]
     Route: 048
     Dates: start: 20090330, end: 20090413
  5. CAPECITABINE [Suspect]
     Route: 048
     Dates: start: 20090420, end: 20090504
  6. CAPECITABINE [Suspect]
     Route: 048
     Dates: start: 20090520, end: 20090603
  7. PYDOXAL [Concomitant]
     Route: 048
     Dates: start: 20090105
  8. CEREDIST [Concomitant]
     Route: 048
  9. LOXONIN [Concomitant]
     Dosage: TAKEN AS NEEDED.
     Route: 048
  10. MUCOSTA [Concomitant]
     Dosage: TAKEN AS NEEDED.
     Route: 048
  11. DIAMOX SRC [Concomitant]
     Route: 048
  12. DEPAS [Concomitant]
     Route: 048

REACTIONS (2)
  - PALMAR-PLANTAR ERYTHRODYSAESTHESIA SYNDROME [None]
  - VOLVULUS [None]
